FAERS Safety Report 6427511-1 (Version None)
Quarter: 2009Q4

REPORT INFORMATION
  Report Type: 
  Country: None (occurrence: None)
  Receive Date: 20091104
  Receipt Date: 20091029
  Transmission Date: 20100525
  Serious: Yes (Death, Hospitalization, Other)
  Sender: FDA-Public Use
  Company Number: PHHY2009CA47405

PATIENT
  Sex: Male

DRUGS (7)
  1. ALISKIREN ALI+ [Suspect]
     Indication: HYPERTENSION
     Dosage: 150 MG
     Route: 048
     Dates: start: 20090917, end: 20091014
  2. ALTACE [Concomitant]
  3. METFORMIN [Concomitant]
     Dosage: 850 MG, BID
  4. ASPIRIN [Concomitant]
     Dosage: 325/DAY
  5. MONOCOR [Concomitant]
     Dosage: 2.5 MG/DAY
  6. PANTOPRAZOLE [Concomitant]
     Dosage: 40 MG, QD
  7. LIPITOR [Concomitant]
     Dosage: 80 MG, QD

REACTIONS (22)
  - ALANINE AMINOTRANSFERASE INCREASED [None]
  - ASPARTATE AMINOTRANSFERASE INCREASED [None]
  - BLOOD ALKALINE PHOSPHATASE INCREASED [None]
  - BLOOD CREATININE INCREASED [None]
  - BLOOD LACTATE DEHYDROGENASE INCREASED [None]
  - CARDIAC FAILURE [None]
  - CARDIOGENIC SHOCK [None]
  - CORONARY ARTERY THROMBOSIS [None]
  - DEHYDRATION [None]
  - DIARRHOEA [None]
  - DYSPNOEA [None]
  - GENERAL PHYSICAL HEALTH DETERIORATION [None]
  - HYPERTHERMIA [None]
  - HYPOTENSION [None]
  - LEUKOCYTOSIS [None]
  - MYALGIA [None]
  - MYOCARDIAL INFARCTION [None]
  - MYOCARDIAL ISCHAEMIA [None]
  - PULSE ABSENT [None]
  - SEPTIC SHOCK [None]
  - TROPONIN INCREASED [None]
  - VENTRICULAR TACHYCARDIA [None]
